FAERS Safety Report 4952280-1 (Version None)
Quarter: 2006Q1

REPORT INFORMATION
  Report Type: 
  Country: None (occurrence: None)
  Receive Date: 20060320
  Receipt Date: 20060314
  Transmission Date: 20060701
  Serious: Yes (Hospitalization)
  Sender: FDA-Public Use
  Company Number: 2006BI002091

PATIENT
  Age: 38 Year
  Sex: Female

DRUGS (14)
  1. AVONEX [Suspect]
     Indication: MULTIPLE SCLEROSIS
     Dosage: 30 UG; QW; IM
     Route: 030
     Dates: start: 19960528, end: 20030922
  2. AVONEX [Suspect]
     Indication: MULTIPLE SCLEROSIS
     Dosage: 30 UG; QW; IM
     Route: 030
     Dates: start: 20030929
  3. LEXAPRO [Concomitant]
  4. DITROPAN XL [Concomitant]
  5. ARICEPT [Concomitant]
  6. KLONOPIN [Concomitant]
  7. LORTAB [Concomitant]
  8. BACLOFEN [Concomitant]
  9. NAMENDA [Concomitant]
  10. FLOMAX [Concomitant]
  11. ASCORBIC ACID [Concomitant]
  12. CALCIUM/VITAMIN D [Concomitant]
  13. FISH OIL CAPSULES [Concomitant]
  14. PNEUMOVAX 23 [Concomitant]

REACTIONS (5)
  - ASTHENIA [None]
  - CONDITION AGGRAVATED [None]
  - MULTIPLE SCLEROSIS [None]
  - SYSTEMIC INFLAMMATORY RESPONSE SYNDROME [None]
  - VIRAL INFECTION [None]
